FAERS Safety Report 5993789-1 (Version None)
Quarter: 2008Q4

REPORT INFORMATION
  Report Type: 
  Country: None (occurrence: None)
  Receive Date: 20081212
  Receipt Date: 20081208
  Transmission Date: 20090506
  Serious: Yes (Other)
  Sender: FDA-Public Use
  Company Number: US-ELI_LILLY_AND_COMPANY-US200812002662

PATIENT
  Age: 75 Year
  Sex: Female

DRUGS (1)
  1. ALIMTA [Suspect]
     Dosage: 500 MG/M2, OTHER; EVERY 3 WEEKS
     Dates: start: 20080901

REACTIONS (1)
  - INGROWN HAIR [None]
